FAERS Safety Report 6809944-4 (Version None)
Quarter: 2010Q2

REPORT INFORMATION
  Report Type: 
  Country: None (occurrence: None)
  Receive Date: 20100630
  Receipt Date: 20100618
  Transmission Date: 20101027
  Serious: Yes (Hospitalization)
  Sender: FDA-Public Use
  Company Number: A0864342A

PATIENT
  Age: 54 Year
  Sex: Male

DRUGS (1)
  1. AVANDAMET [Suspect]
     Indication: DIABETES MELLITUS
     Dosage: 2MG TWICE PER DAY
     Route: 048
     Dates: start: 20030101, end: 20050301

REACTIONS (8)
  - CARDIAC DISORDER [None]
  - CARDIOVASCULAR DISORDER [None]
  - CORONARY ARTERY DISEASE [None]
  - CORONARY ARTERY STENOSIS [None]
  - HEART INJURY [None]
  - IMPAIRED WORK ABILITY [None]
  - IN-STENT CORONARY ARTERY RESTENOSIS [None]
  - MYOCARDIAL INFARCTION [None]
